FAERS Safety Report 4336331-3 (Version None)
Quarter: 2004Q2

REPORT INFORMATION
  Report Type: 
  Country: None (occurrence: None)
  Receive Date: 20040407
  Receipt Date: 20040324
  Transmission Date: 20050107
  Serious: Yes (Hospitalization)
  Sender: FDA-Public Use
  Company Number: 2004203619US

PATIENT
  Age: 55 Year
  Sex: Female

DRUGS (7)
  1. ELLENCE [Suspect]
     Indication: BREAST CANCER METASTATIC
     Dosage: 143 MG, CYCLIC, IV
     Route: 042
     Dates: start: 20031230
  2. TAXOTERE [Suspect]
     Indication: BREAST CANCER METASTATIC
     Dosage: 143 MG, CYCLIC, IV
     Route: 042
     Dates: start: 20031230
  3. COMPARATOR-CYCLOSPHOSPHAMIDE (CYCLOPHOSPHAMIDE, CYCLOPHOSPHAMIDE) INJE [Suspect]
     Indication: BREAST CANCER METASTATIC
     Dosage: 955 MG, CYCLIC, IV
     Route: 042
     Dates: start: 20031230
  4. NEULASTA [Suspect]
     Dosage: 6 MG, EVERY 3 WEEKS, CYCLIC,
  5. TOFRANIL [Concomitant]
  6. ATIVAN [Concomitant]
  7. LIPITOR [Concomitant]

REACTIONS (11)
  - ASTHENIA [None]
  - BLOOD CHLORIDE DECREASED [None]
  - BLOOD GLUCOSE INCREASED [None]
  - BLOOD SODIUM DECREASED [None]
  - DEHYDRATION [None]
  - DIZZINESS [None]
  - FEBRILE NEUTROPENIA [None]
  - HAEMATOCRIT DECREASED [None]
  - LOBAR PNEUMONIA [None]
  - PHARYNGOLARYNGEAL PAIN [None]
  - PLATELET COUNT DECREASED [None]
